FAERS Safety Report 7741899-0 (Version None)
Quarter: 2011Q3

REPORT INFORMATION
  Report Type: 
  Country: None (occurrence: None)
  Receive Date: 20110907
  Receipt Date: 20110907
  Transmission Date: 20111222
  Serious: Yes (Other)
  Sender: FDA-Public Use
  Company Number: None

PATIENT
  Sex: Female

DRUGS (2)
  1. SUBOXONE [Suspect]
     Indication: DRUG DEPENDENCE
     Dosage: 8/2MG 1 FILM DAILY SUBLING 059
     Route: 060
     Dates: start: 20110815
  2. SUBOXONE [Suspect]
     Indication: DRUG DEPENDENCE
     Dates: start: 20110815

REACTIONS (4)
  - BURNING SENSATION MUCOSAL [None]
  - MACULE [None]
  - ORAL DISORDER [None]
  - ABDOMINAL PAIN [None]
